FAERS Safety Report 22089553 (Version 1)
Quarter: 2023Q1

REPORT INFORMATION
  Report Type: Spontaneous
  Country: US (occurrence: None)
  Receive Date: 20230312
  Receipt Date: 20230312
  Transmission Date: 20230418
  Serious: Yes (Other)
  Sender: FDA-Public Use
  Company Number: None

PATIENT
  Sex: Female

DRUGS (1)
  1. VYVANSE [Suspect]
     Active Substance: LISDEXAMFETAMINE DIMESYLATE
     Dates: start: 20230311

REACTIONS (5)
  - Hyperhidrosis [None]
  - Nausea [None]
  - Product substitution issue [None]
  - Tachycardia [None]
  - Therapeutic product effect decreased [None]

NARRATIVE: CASE EVENT DATE: 20230311
